FAERS Safety Report 4602122-9 (Version None)
Quarter: 2005Q2

REPORT INFORMATION
  Report Type: 
  Country: None (occurrence: None)
  Receive Date: 20050215
  Receipt Date: 20040220
  Transmission Date: 20051028
  Serious: Yes (Hospitalization)
  Sender: FDA-Public Use
  Company Number: MC200400079

PATIENT
  Sex: Female

DRUGS (2)
  1. ANGIOMAX [Suspect]
     Indication: ANTICOAGULANT THERAPY
     Dosage: 0.75 MG/KG, BOLUS, IV BOLUS
     Route: 040
     Dates: start: 20040219, end: 20040219
  2. ANGIOMAX [Suspect]
     Dosage: 38 ML/HR, HR INF, INTRAVENOUS
     Route: 042
     Dates: start: 20040219, end: 20040219

REACTIONS (4)
  - BRADYCARDIA [None]
  - HYPOTENSION [None]
  - STENT OCCLUSION [None]
  - VESSEL PUNCTURE SITE HAEMORRHAGE [None]
